FAERS Safety Report 20186014 (Version 1)
Quarter: 2021Q4

REPORT INFORMATION
  Report Type: Report from Study
  Country: CN (occurrence: CN)
  Receive Date: 20211215
  Receipt Date: 20211215
  Transmission Date: 20220303
  Serious: Yes (Hospitalization, Other)
  Sender: FDA-Public Use
  Company Number: CN-TAKEDA-2021TUS079027

PATIENT
  Sex: Male
  Weight: 10 kg

DRUGS (3)
  1. ADVATE [Suspect]
     Active Substance: ANTIHEMOPHILIC FACTOR, HUMAN RECOMBINANT
     Indication: Factor VIII deficiency
     Dosage: 250 INTERNATIONAL UNIT, BID
     Route: 040
     Dates: start: 20210930, end: 20211124
  2. ADVATE [Suspect]
     Active Substance: ANTIHEMOPHILIC FACTOR, HUMAN RECOMBINANT
     Indication: Factor VIII deficiency
     Dosage: 250 INTERNATIONAL UNIT, BID
     Route: 040
     Dates: start: 20210930, end: 20211124
  3. ADVATE [Suspect]
     Active Substance: ANTIHEMOPHILIC FACTOR, HUMAN RECOMBINANT
     Indication: Factor VIII deficiency
     Dosage: 250 INTERNATIONAL UNIT, BID
     Route: 040
     Dates: start: 20210930, end: 20211124

REACTIONS (3)
  - Cerebral haemorrhage [Recovered/Resolved]
  - Hand fracture [Recovered/Resolved]
  - Factor VIII inhibition [Recovered/Resolved]
